FAERS Safety Report 8850780 (Version 1)
Quarter: 2012Q4

REPORT INFORMATION
  Report Type: 
  Country: IT (occurrence: IT)
  Receive Date: 20121019
  Receipt Date: 20121019
  Transmission Date: 20130627
  Serious: Yes (Death)
  Sender: FDA-Public Use
  Company Number: IT-ELI_LILLY_AND_COMPANY-IT201210003407

PATIENT
  Age: 80 Year
  Sex: Female

DRUGS (5)
  1. FORSTEO [Suspect]
  2. TRIATEC [Concomitant]
  3. DELTACORTENE [Concomitant]
  4. CARDICOR [Concomitant]
  5. COUMADIN [Concomitant]

REACTIONS (1)
  - Death [Fatal]
